FAERS Safety Report 14629810 (Version 10)
Quarter: 2019Q3

REPORT INFORMATION
  Report Type: Report from Study
  Country: DE (occurrence: DE)
  Receive Date: 20180313
  Receipt Date: 20190802
  Transmission Date: 20191004
  Serious: No
  Sender: FDA-Public Use
  Company Number: DE-ROCHE-2087412

PATIENT
  Age: 43 Year
  Sex: Female

DRUGS (7)
  1. L-THYROXIN [LEVOTHYROXINE] [Concomitant]
     Active Substance: LEVOTHYROXINE SODIUM
     Route: 065
  2. OCREVUS [Suspect]
     Active Substance: OCRELIZUMAB
     Route: 042
     Dates: start: 20180905
  3. SIMVASTATIN. [Concomitant]
     Active Substance: SIMVASTATIN
     Route: 065
  4. VITAMIN D3 [Concomitant]
     Active Substance: CHOLECALCIFEROL
     Route: 065
  5. OCREVUS [Suspect]
     Active Substance: OCRELIZUMAB
     Indication: RELAPSING MULTIPLE SCLEROSIS
     Route: 042
     Dates: start: 20180228
  6. INFLUENZA VACCINE [Concomitant]
     Active Substance: INFLUENZA VIRUS VACCINE
     Route: 065
     Dates: start: 20190115
  7. OCREVUS [Suspect]
     Active Substance: OCRELIZUMAB
     Route: 042
     Dates: start: 20190314

REACTIONS (13)
  - Fall [Unknown]
  - Arthralgia [Recovered/Resolved]
  - Blood cholesterol increased [Recovering/Resolving]
  - Sleep disorder [Unknown]
  - Ligament sprain [Not Recovered/Not Resolved]
  - Hypotonia [Recovered/Resolved]
  - Hair colour changes [Not Recovered/Not Resolved]
  - Fatigue [Recovered/Resolved]
  - Hypotension [Unknown]
  - Cough [Recovering/Resolving]
  - Nasopharyngitis [Recovered/Resolved]
  - Palpitations [Recovered/Resolved]
  - Fatigue [Recovered/Resolved]

NARRATIVE: CASE EVENT DATE: 20180228
